FAERS Safety Report 11288984 (Version 3)
Quarter: 2015Q3

REPORT INFORMATION
  Report Type: Spontaneous
  Country: AU (occurrence: AU)
  Receive Date: 20150721
  Receipt Date: 20150818
  Transmission Date: 20151125
  Serious: Yes (Hospitalization, Other)
  Sender: FDA-Public Use
  Company Number: AU-ALEXION PHARMACEUTICALS INC-A201502686

PATIENT

DRUGS (2)
  1. WARFARIN [Concomitant]
     Active Substance: WARFARIN
     Indication: PRODUCT USED FOR UNKNOWN INDICATION
     Dosage: UNK
     Route: 065
  2. SOLIRIS [Suspect]
     Active Substance: ECULIZUMAB
     Indication: PRODUCT USED FOR UNKNOWN INDICATION
     Dosage: UNK
     Route: 042
     Dates: end: 20150728

REACTIONS (10)
  - Sepsis [Recovered/Resolved]
  - Embolism [Unknown]
  - White blood cell count increased [Recovered/Resolved]
  - Infection [Recovered/Resolved]
  - Peripheral embolism [Unknown]
  - Endocarditis [Unknown]
  - Blood lactate dehydrogenase increased [Unknown]
  - Renal failure [Unknown]
  - Thrombotic microangiopathy [Unknown]
  - Platelet count abnormal [Recovered/Resolved]

NARRATIVE: CASE EVENT DATE: 20150712
